FAERS Safety Report 5390881-X (Version None)
Quarter: 2007Q3

REPORT INFORMATION
  Report Type: 
  Country: None (occurrence: None)
  Receive Date: 20070716
  Receipt Date: 20070711
  Transmission Date: 20080115
  Serious: Yes (Hospitalization)
  Sender: FDA-Public Use
  Company Number: 2007AL002256

PATIENT
  Age: 78 Year
  Sex: Female
  Weight: 55.4 kg

DRUGS (18)
  1. DIGOXIN [Suspect]
     Dosage: PO
     Route: 048
  2. SUNITINIB MALATE [Concomitant]
  3. FOSAMAX [Concomitant]
  4. HYDROCHLOROTHIAZIDE [Concomitant]
  5. HYDROCODONE BITARTRATE [Concomitant]
  6. ISOSORBIDE DINITRATE [Concomitant]
  7. LEVOTHYROXINE SODIUM [Concomitant]
  8. LIPITOR [Concomitant]
  9. LISINOPRIL [Concomitant]
  10. LORAZEPAM [Concomitant]
  11. OMEPRAZOLE [Concomitant]
  12. CORTISONE ACETATE [Concomitant]
  13. GLUCOSAMINE [Concomitant]
  14. VITAMIN CAP [Concomitant]
  15. GLYCEROL 2.6% [Concomitant]
  16. OMEGA 3 [Concomitant]
  17. BIOTENE [Concomitant]
  18. OSCAL [Concomitant]

REACTIONS (10)
  - ASTHENIA [None]
  - BLOOD BILIRUBIN INCREASED [None]
  - BLOOD CHLORIDE DECREASED [None]
  - BLOOD GLUCOSE INCREASED [None]
  - BLOOD SODIUM DECREASED [None]
  - CHOLECYSTITIS [None]
  - FATIGUE [None]
  - LETHARGY [None]
  - MALAISE [None]
  - VOMITING [None]
